FAERS Safety Report 11855173 (Version 1)
Quarter: 2015Q4

REPORT INFORMATION
  Report Type: Spontaneous
  Country: US (occurrence: None)
  Receive Date: 20151218
  Receipt Date: 20151218
  Transmission Date: 20160305
  Serious: Yes (Other)
  Sender: FDA-Public Use
  Company Number: None

PATIENT
  Age: 30 Year
  Sex: Female

DRUGS (3)
  1. ZECUITY [Suspect]
     Active Substance: SUMATRIPTAN SUCCINATE
     Indication: MIGRAINE
     Dosage: 6.5 MG, BID PRN, TOPICALLY
     Route: 061
     Dates: start: 20151107, end: 20151114
  2. SAXENDA [Concomitant]
     Active Substance: LIRAGLUTIDE
  3. TOPAMAX [Concomitant]
     Active Substance: TOPIRAMATE

REACTIONS (6)
  - Swelling [None]
  - Blister [None]
  - Drug effect decreased [None]
  - Scab [None]
  - Chemical injury [None]
  - Pain [None]

NARRATIVE: CASE EVENT DATE: 20151107
